FAERS Safety Report 6606535-5 (Version None)
Quarter: 2010Q1

REPORT INFORMATION
  Report Type: 
  Country: None (occurrence: None)
  Receive Date: 20100226
  Receipt Date: 20100224
  Transmission Date: 20100710
  Serious: Yes (Death, Hospitalization, Other)
  Sender: FDA-Public Use
  Company Number: PHEH2010US02464

PATIENT
  Sex: Male

DRUGS (18)
  1. RECLAST [Suspect]
     Dosage: UNK
  2. SENNA [Concomitant]
     Dosage: UNK
  3. IRON [Concomitant]
     Dosage: UNK
  4. ZOCOR [Concomitant]
     Dosage: 40 MG, QD
  5. LOPRESSOR [Concomitant]
     Dosage: 25 MG, BID
  6. OXYCODONE HCL [Concomitant]
     Dosage: 10 MG, BID
  7. LANTUS [Concomitant]
     Dosage: 40 U, QHS
  8. COUMADIN [Concomitant]
     Dosage: 5 MG, QD
  9. LISINOPRIL [Concomitant]
     Dosage: 20 MG, QD
  10. AMARYL [Concomitant]
     Dosage: 1 MG, QD
  11. LYRICA [Concomitant]
     Dosage: UNK MG, BID
  12. VITAMIN D [Concomitant]
     Dosage: 400 MG, BID
  13. LASIX [Concomitant]
     Dosage: 20 MG, QD
  14. CALCIUM [Concomitant]
     Dosage: UNK, TID
  15. PLAVIX [Concomitant]
     Dosage: 75 MG, QD
  16. PREDNISONE [Concomitant]
     Dosage: 5 MG, BID
     Route: 048
  17. SYNTHROID [Concomitant]
     Dosage: 75 MCG, QD
  18. DIGOXIN [Concomitant]
     Dosage: 0.25 MG, QD

REACTIONS (14)
  - ACUTE MYOCARDIAL INFARCTION [None]
  - AGITATION [None]
  - AORTIC STENOSIS [None]
  - ATRIAL FIBRILLATION [None]
  - CHEST PAIN [None]
  - CHRONIC OBSTRUCTIVE PULMONARY DISEASE [None]
  - CORONARY ARTERY DISEASE [None]
  - DELIRIUM [None]
  - HEART RATE INCREASED [None]
  - HYPOTHYROIDISM [None]
  - INTERNATIONAL NORMALISED RATIO INCREASED [None]
  - ISCHAEMIA [None]
  - TROPONIN INCREASED [None]
  - TYPE 2 DIABETES MELLITUS [None]
